FAERS Safety Report 9178715 (Version 1)
Quarter: 2012Q4

REPORT INFORMATION
  Report Type: 
  Country: US (occurrence: US)
  Receive Date: 20121029
  Receipt Date: 20121029
  Transmission Date: 20130627
  Serious: No
  Sender: FDA-Public Use
  Company Number: US-AMGEN-USASP2012053179

PATIENT
  Age: 64 Year
  Sex: Female
  Weight: 61.68 kg

DRUGS (5)
  1. ENBREL [Suspect]
     Indication: PRODUCT USED FOR UNKNOWN INDICATION
     Dosage: 50 mg/ml, qwk
     Route: 058
  2. CENTRUM SILVER                     /02363801/ [Concomitant]
     Dosage: UNK
  3. XANAX [Concomitant]
     Dosage: 0.25 mg, UNK
  4. SYNTHROID [Concomitant]
     Dosage: 100 mug, UNK
  5. TYLENOL /00020001/ [Concomitant]
     Dosage: 325 mg, UNK

REACTIONS (6)
  - Road traffic accident [Unknown]
  - Burning sensation [Unknown]
  - Back pain [Unknown]
  - Muscle spasms [Unknown]
  - Paraesthesia [Unknown]
  - Neck pain [Unknown]
